FAERS Safety Report 5061317-3 (Version None)
Quarter: 2006Q3

REPORT INFORMATION
  Report Type: 
  Country: None (occurrence: None)
  Receive Date: 20060703
  Receipt Date: 20060324
  Transmission Date: 20061208
  Serious: No
  Sender: FDA-Public Use
  Company Number: 2006PV010895

PATIENT
  Age: 23 Year
  Sex: Female

DRUGS (1)
  1. SYMLIN [Suspect]
     Indication: DIABETES MELLITUS INSULIN-DEPENDENT
     Dates: start: 20060212

REACTIONS (2)
  - INJECTION SITE IRRITATION [None]
  - INJECTION SITE PAIN [None]
